FAERS Safety Report 7892565-2 (Version None)
Quarter: 2011Q4

REPORT INFORMATION
  Report Type: 
  Country: None (occurrence: None)
  Receive Date: 20111104
  Receipt Date: 20111025
  Transmission Date: 20120403
  Serious: Yes (Hospitalization, Other)
  Sender: FDA-Public Use
  Company Number: US-BAYER-2011-023427

PATIENT
  Age: 38 Year
  Sex: Female
  Weight: 94 kg

DRUGS (17)
  1. YASMIN [Suspect]
     Indication: MENSTRUATION IRREGULAR
  2. HIDROQUIN [Concomitant]
     Indication: SYSTEMIC LUPUS ERYTHEMATOSUS
     Dosage: 400 MG, QD
  3. EVOXAC [Concomitant]
     Indication: DRY MOUTH
     Dosage: UNK
     Dates: start: 20071101
  4. PROPOXYPHENE HYDROCHLORIDE [Concomitant]
     Indication: PAIN
  5. ATENOLOL [Concomitant]
     Indication: HYPERTENSION
     Dosage: 25 MG, QD
  6. YAZ [Suspect]
     Indication: MENSTRUATION IRREGULAR
     Dosage: UNK
     Dates: start: 20081101, end: 20081201
  7. ISOMETHEPTENE/DICHLORALPHENAZONE/APAP [Concomitant]
     Indication: PAIN
     Dosage: 10 MG, BID
  8. YAZ [Suspect]
     Indication: ORAL CONTRACEPTION
     Dosage: UNK
     Dates: start: 20070901, end: 20080901
  9. PROMETHAZINE [Concomitant]
     Indication: HYPERSENSITIVITY
     Dosage: 25 MG, QD
  10. PREDNISONE [Concomitant]
     Indication: HYPERSENSITIVITY
     Dosage: 10 MG, QD
  11. BUPROPION HYDROCHLORIDE [Concomitant]
     Indication: DEPRESSION
     Dosage: 150 MG, QD
     Dates: start: 20050101
  12. NEXIUM [Concomitant]
     Dosage: 80 MG, QD
  13. ALPRAZOLAM [Concomitant]
     Indication: ANXIETY
     Dosage: 0.5 MG, TID
  14. YAZ [Suspect]
     Indication: PREMENSTRUAL SYNDROME
     Dosage: UNK
     Dates: start: 20090201, end: 20090601
  15. YASMIN [Suspect]
     Indication: PREMENSTRUAL SYNDROME
  16. YASMIN [Suspect]
     Indication: CONTRACEPTION
     Dosage: UNK
     Dates: start: 20050201
  17. AMBIEN [Concomitant]
     Indication: INSOMNIA
     Dosage: 12.5 MG, QD

REACTIONS (12)
  - ABDOMINAL DISTENSION [None]
  - ANXIETY [None]
  - DEPRESSION [None]
  - INJURY [None]
  - DIARRHOEA [None]
  - DYSPEPSIA [None]
  - CONSTIPATION [None]
  - PAIN [None]
  - CHOLECYSTITIS CHRONIC [None]
  - FLATULENCE [None]
  - SCAR [None]
  - GALLBLADDER DISORDER [None]
